FAERS Safety Report 6493558-2 (Version None)
Quarter: 2009Q4

REPORT INFORMATION
  Report Type: 
  Country: None (occurrence: None)
  Receive Date: 20091209
  Receipt Date: 20091123
  Transmission Date: 20100525
  Serious: Yes (Hospitalization)
  Sender: FDA-Public Use
  Company Number: 2009PV000080

PATIENT
  Age: 79 Year
  Sex: Male

DRUGS (6)
  1. DEPOCTYE         (CYTARABINE) [Suspect]
     Indication: METASTASES TO MENINGES
     Dosage: 50 MG; 3X; INTH
     Route: 037
     Dates: start: 20090209, end: 20090303
  2. DURAGESIC-100 [Concomitant]
  3. LYRICA [Concomitant]
  4. CITALOPRAM HYDROBROMIDE [Concomitant]
  5. PREDNISONE TAB [Concomitant]
  6. METHOTREXATE [Suspect]
     Dosage: 50 MG; 3X; INTH

REACTIONS (4)
  - DISEASE PROGRESSION [None]
  - MONOPARESIS [None]
  - NEUROTOXICITY [None]
  - QUADRIPARESIS [None]
